FAERS Safety Report 16277547 (Version 6)
Quarter: 2019Q3

REPORT INFORMATION
  Report Type: Spontaneous
  Country: CA (occurrence: CA)
  Receive Date: 20190506
  Receipt Date: 20190807
  Transmission Date: 20191004
  Serious: Yes (Death, Life-Threatening, Other)
  Sender: FDA-Public Use
  Company Number: CA-PFIZER INC-2019188032

PATIENT
  Age: 66 Year
  Sex: Male
  Weight: 80 kg

DRUGS (4)
  1. LYRICA [Suspect]
     Active Substance: PREGABALIN
     Indication: PAIN
     Dosage: 75 MG, DAILY
     Route: 048
  2. LYRICA [Suspect]
     Active Substance: PREGABALIN
     Indication: NEURALGIA
  3. ZOPICLONE [Concomitant]
     Active Substance: ZOPICLONE
     Indication: CROHN^S DISEASE
     Dosage: 7.5 MG, DAILY
     Route: 048
  4. IMURAN [Concomitant]
     Active Substance: AZATHIOPRINE
     Indication: CROHN^S DISEASE
     Dosage: 50 MG, FOUR TIMES DAILY (200 MG, DAILY)
     Route: 048
     Dates: start: 2004

REACTIONS (5)
  - Constipation [Fatal]
  - Rectal haemorrhage [Not Recovered/Not Resolved]
  - Haemorrhoidal haemorrhage [Fatal]
  - Gastrointestinal cancer metastatic [Fatal]
  - Pulmonary embolism [Fatal]
